FAERS Safety Report 15480316 (Version 1)
Quarter: 2018Q4

REPORT INFORMATION
  Report Type: Spontaneous
  Country: AR (occurrence: AR)
  Receive Date: 20181009
  Receipt Date: 20181009
  Transmission Date: 20190205
  Serious: Yes (Hospitalization)
  Sender: FDA-Public Use
  Company Number: AR-BIOMARINAP-AR-2018-119995

PATIENT
  Age: 13 Year
  Sex: Male

DRUGS (1)
  1. BRINEURA [Suspect]
     Active Substance: CERLIPONASE ALFA
     Indication: NEURONAL CEROID LIPOFUSCINOSIS
     Dosage: 300 MILLIGRAM, QOW
     Route: 020
     Dates: start: 20180529

REACTIONS (10)
  - Dehydration [Recovering/Resolving]
  - Pyrexia [Recovered/Resolved]
  - Depressed level of consciousness [Recovered/Resolved]
  - Status epilepticus [Recovered/Resolved]
  - Cough [Recovering/Resolving]
  - Partial seizures [Not Recovered/Not Resolved]
  - Weight decreased [Unknown]
  - Vomiting [Recovering/Resolving]
  - Secretion discharge [Recovering/Resolving]
  - Diarrhoea [Recovering/Resolving]

NARRATIVE: CASE EVENT DATE: 20180906
